FAERS Safety Report 11176624 (Version 1)
Quarter: 2015Q2

REPORT INFORMATION
  Report Type: Spontaneous
  Country: US (occurrence: None)
  Receive Date: 20150609
  Receipt Date: 20150609
  Transmission Date: 20150821
  Serious: No
  Sender: FDA-Public Use
  Company Number: None

PATIENT
  Age: 65 Year
  Sex: Male
  Weight: 73.2 kg

DRUGS (1)
  1. NIVOLUMAB [Suspect]
     Active Substance: NIVOLUMAB
     Indication: LUNG SQUAMOUS CELL CARCINOMA METASTATIC
     Dosage: 220 MG  ONCE  IV
     Route: 042
     Dates: start: 20150528, end: 20150528

REACTIONS (5)
  - Arthralgia [None]
  - Neck pain [None]
  - Pain in extremity [None]
  - Dizziness [None]
  - Autoimmune neuropathy [None]

NARRATIVE: CASE EVENT DATE: 20150608
